FAERS Safety Report 10526379 (Version 1)
Quarter: 2014Q4

REPORT INFORMATION
  Report Type: Report from Study
  Country: US (occurrence: US)
  Receive Date: 20141019
  Receipt Date: 20141019
  Transmission Date: 20150528
  Serious: Yes (Other)
  Sender: FDA-Public Use
  Company Number: US-BRISTOL-MYERS SQUIBB COMPANY-21481189

PATIENT
  Age: 58 Year
  Sex: Male
  Weight: 80.72 kg

DRUGS (3)
  1. GLIMEPIRIDE. [Suspect]
     Active Substance: GLIMEPIRIDE
  2. BYETTA [Suspect]
     Active Substance: EXENATIDE
     Dosage: INJECTION
     Route: 058
  3. METFORMIN HCL [Suspect]
     Active Substance: METFORMIN HYDROCHLORIDE

REACTIONS (5)
  - Depression [Unknown]
  - Bipolar disorder [Unknown]
  - Attention deficit/hyperactivity disorder [Unknown]
  - Blood glucose increased [Unknown]
  - Weight decreased [Unknown]
